FAERS Safety Report 7808365-5 (Version None)
Quarter: 2011Q4

REPORT INFORMATION
  Report Type: 
  Country: None (occurrence: None)
  Receive Date: 20111007
  Receipt Date: 20110927
  Transmission Date: 20120403
  Serious: Yes (Death, Other)
  Sender: FDA-Public Use
  Company Number: 1058424

PATIENT
  Age: 8 Year
  Sex: Female
  Weight: 22.4 kg

DRUGS (22)
  1. BUSULFAN [Suspect]
     Indication: BONE MARROW FAILURE
     Dosage: 23 MG MILLIGRAMS (S), UNKNOWN, ORAL
     Route: 048
     Dates: start: 20110425, end: 20110428
  2. IMMUNE GLOBULIN NOS [Concomitant]
  3. CYCLOPHOSPHAMIDE [Suspect]
     Indication: BONE MARROW FAILURE
     Dosage: 1120 MG MILLIGRAM(S) INTRAVENOUS
     Route: 042
     Dates: start: 20110429, end: 20110502
  4. AMPHOTERICIN B [Concomitant]
  5. CASPOFUNGIN ACETATE [Concomitant]
  6. CYCLOSPORINE [Concomitant]
  7. HYDROCORTISONE [Concomitant]
  8. ISONIAZID [Concomitant]
  9. LINEZOLID [Concomitant]
  10. OCTREOTIDE ACETATE [Concomitant]
  11. ALLOPURINOL [Concomitant]
  12. LEUCOVORIN CALCIUM [Concomitant]
  13. GANCICLOVIR [Concomitant]
  14. PHENYTOIN [Concomitant]
  15. MABCAMPATH [Suspect]
     Indication: BONE MARROW TRANSPLANT
     Dosage: 2.2 MG MILLIGRAMS INTRAVENOUS
     Route: 042
  16. MEPERIDINE HCL [Concomitant]
  17. DAPSONE [Concomitant]
  18. METHOTREXATE [Suspect]
     Indication: GRAFT VERSUS HOST DISEASE
     Dosage: 8.5 MG MILLIGRAM(S) INTRAVENOUS
     Route: 042
     Dates: start: 20110508, end: 20110511
  19. DEFIBROTIDE [Concomitant]
  20. MESNA [Concomitant]
  21. METRONIDAZOLE [Concomitant]
  22. ACETAMINOPHEN [Concomitant]

REACTIONS (13)
  - PULMONARY HYPERTENSION [None]
  - BACTERIAL SEPSIS [None]
  - RESPIRATORY FAILURE [None]
  - PNEUMONIA ADENOVIRAL [None]
  - MUCOSAL INFLAMMATION [None]
  - VENOOCCLUSIVE DISEASE [None]
  - CYTOMEGALOVIRUS INFECTION [None]
  - PULMONARY HAEMORRHAGE [None]
  - RENAL IMPAIRMENT [None]
  - HAEMODIALYSIS [None]
  - IDIOPATHIC PNEUMONIA SYNDROME [None]
  - LIVER DISORDER [None]
  - METHYLOBACTERIUM INFECTION [None]
